FAERS Safety Report 12750258 (Version 1)
Quarter: 2016Q3

REPORT INFORMATION
  Report Type: Spontaneous
  Country: US (occurrence: US)
  Receive Date: 20160916
  Receipt Date: 20160916
  Transmission Date: 20161109
  Serious: Yes (Other)
  Sender: FDA-Public Use
  Company Number: US-TEVA-692105USA

PATIENT
  Age: 28 Year
  Sex: Female
  Weight: 45.4 kg

DRUGS (9)
  1. ABACAVIR. [Concomitant]
     Active Substance: ABACAVIR
  2. AZITHROMYCIN ANHYDROUS. [Concomitant]
     Active Substance: AZITHROMYCIN ANHYDROUS
     Indication: OPPORTUNISTIC INFECTION PROPHYLAXIS
  3. VALTREX [Concomitant]
     Active Substance: VALACYCLOVIR HYDROCHLORIDE
     Dosage: 2 GRAM DAILY; AS OUTPATIENT
     Dates: end: 201409
  4. LAMIVUDINE. [Concomitant]
     Active Substance: LAMIVUDINE
  5. BACTRIM [Suspect]
     Active Substance: SULFAMETHOXAZOLE\TRIMETHOPRIM
     Route: 065
  6. ACYCLOVIR. [Suspect]
     Active Substance: ACYCLOVIR
     Dosage: 3 TIMES A DAY FOR 7 DAYS
     Route: 042
  7. FLUCONAZOLE. [Suspect]
     Active Substance: FLUCONAZOLE
     Route: 065
  8. MARAVIROC [Concomitant]
     Active Substance: MARAVIROC
     Indication: HIV INFECTION
  9. FLUCONAZOLE. [Suspect]
     Active Substance: FLUCONAZOLE
     Dosage: 600 MILLIGRAM DAILY;
     Route: 065

REACTIONS (1)
  - Neutropenia [Not Recovered/Not Resolved]

NARRATIVE: CASE EVENT DATE: 201409
